FAERS Safety Report 7105358-0 (Version None)
Quarter: 2010Q4

REPORT INFORMATION
  Report Type: 
  Country: None (occurrence: None)
  Receive Date: 20101116
  Receipt Date: 20101108
  Transmission Date: 20110411
  Serious: Yes (Death, Life-Threatening)
  Sender: FDA-Public Use
  Company Number: NL-GENZYME-CLOF-1001286

PATIENT
  Sex: Female

DRUGS (3)
  1. EVOLTRA [Suspect]
     Dosage: 28.5 MG, QDX5
     Route: 042
     Dates: start: 20100928, end: 20101002
  2. CYTARABINE [Suspect]
     Dosage: 380 MG, QD
     Route: 042
     Dates: start: 20100928, end: 20101001
  3. IDARUBICIN HCL [Suspect]
     Dosage: 23 MG, QD
     Dates: start: 20100928, end: 20100930

REACTIONS (2)
  - DYSPNOEA [None]
  - LUNG INFECTION [None]
